FAERS Safety Report 5257699-X (Version None)
Quarter: 2007Q1

REPORT INFORMATION
  Report Type: 
  Country: None (occurrence: None)
  Receive Date: 20070302
  Receipt Date: 20070216
  Transmission Date: 20070707
  Serious: Yes (Other)
  Sender: FDA-Public Use
  Company Number: 15727

PATIENT
  Age: 66 Year
  Sex: Female

DRUGS (11)
  1. METHOTREXATE [Suspect]
     Indication: ACUTE PROMYELOCYTIC LEUKAEMIA
     Dosage: 15 MG IT
     Route: 038
     Dates: start: 20060501
  2. ARA C [Suspect]
     Indication: ACUTE PROMYELOCYTIC LEUKAEMIA
     Dosage: 100 MG/M2 PER_CYCLE UNK
  3. ARA C [Suspect]
     Indication: ACUTE PROMYELOCYTIC LEUKAEMIA
     Dosage: 200 MG/M2 PER_CYCLE UNK
  4. ARA C [Suspect]
     Indication: ACUTE PROMYELOCYTIC LEUKAEMIA
     Dosage: 150 MG/M2 UNK
  5. ARA C [Suspect]
     Indication: ACUTE PROMYELOCYTIC LEUKAEMIA
     Dosage: 40 MG IT
     Route: 038
     Dates: start: 20060501
  6. PREDNISOLONE [Suspect]
     Indication: ACUTE PROMYELOCYTIC LEUKAEMIA
     Dosage: 10 MG IT
     Route: 038
     Dates: start: 20060501
  7. ALL-TRANS-RETINOIC ACID [Concomitant]
  8. IDARUBICIN HCL [Concomitant]
  9. MITOXANTRONE [Concomitant]
  10. DAUNORUBICIN HCL [Concomitant]
  11. CHEMOTHERAPY [Concomitant]

REACTIONS (2)
  - INAPPROPRIATE ANTIDIURETIC HORMONE SECRETION [None]
  - NUCLEAR MAGNETIC RESONANCE IMAGING BRAIN ABNORMAL [None]
